FAERS Safety Report 13867458 (Version 5)
Quarter: 2019Q2

REPORT INFORMATION
  Report Type: Report from Study
  Country: US (occurrence: US)
  Receive Date: 20170814
  Receipt Date: 20190429
  Transmission Date: 20190711
  Serious: Yes (Hospitalization, Other)
  Sender: FDA-Public Use
  Company Number: US-ACTELION-A-NJ2017-156018

PATIENT
  Sex: Male
  Weight: 113.38 kg

DRUGS (7)
  1. ADCIRCA [Concomitant]
     Active Substance: TADALAFIL
     Dosage: UNK
     Dates: end: 20171004
  2. DILTIAZEM. [Concomitant]
     Active Substance: DILTIAZEM
  3. WARFARIN [Concomitant]
     Active Substance: WARFARIN
  4. TRACLEER [Suspect]
     Active Substance: BOSENTAN
     Dosage: 62.5 MG, BID
     Route: 048
  5. OXYGEN. [Concomitant]
     Active Substance: OXYGEN
     Dosage: 2 L/MIN, QAM AND 3L/MIN, QPM
  6. TRACLEER [Suspect]
     Active Substance: BOSENTAN
     Indication: PULMONARY HYPERTENSION
     Dosage: 125 MG, BID
     Route: 048
  7. ELIQUIS [Concomitant]
     Active Substance: APIXABAN

REACTIONS (24)
  - Cardiac failure congestive [Unknown]
  - Cardiac failure [Unknown]
  - Weight increased [Unknown]
  - Dyspnoea exertional [Unknown]
  - Dyspnoea at rest [Unknown]
  - Heart rate increased [Unknown]
  - Loss of consciousness [Unknown]
  - Syncope [Unknown]
  - Oedema [Unknown]
  - Blood potassium abnormal [Unknown]
  - Cough [Unknown]
  - Atrial fibrillation [Unknown]
  - Presyncope [Unknown]
  - Chronic obstructive pulmonary disease [Unknown]
  - Asthma [Unknown]
  - Pneumonia [Unknown]
  - Rhinovirus infection [Unknown]
  - Chest pain [Unknown]
  - Myocardial infarction [Unknown]
  - Swelling [Unknown]
  - Tachycardia [Unknown]
  - Disease complication [Unknown]
  - Hypertension [Recovered/Resolved]
  - Peripheral swelling [Unknown]
